FAERS Safety Report 9302731 (Version 3)
Quarter: 2013Q4

REPORT INFORMATION
  Report Type: Report from Study
  Country: BR (occurrence: BR)
  Receive Date: 20130522
  Receipt Date: 20131021
  Transmission Date: 20140711
  Serious: Yes (Other)
  Sender: FDA-Public Use
  Company Number: PHHY2013BR050064

PATIENT
  Sex: Female
  Weight: 65 kg

DRUGS (4)
  1. GILENYA [Suspect]
     Indication: MULTIPLE SCLEROSIS
     Dosage: 0.5 MG, QD
     Route: 048
  2. COMADIN [Concomitant]
     Dosage: 1 DF, UNK
     Dates: start: 2012
  3. MANTIDAN [Concomitant]
     Dosage: 1 DF, UNK
  4. EXODOS [Concomitant]
     Indication: SLEEP DISORDER
     Dosage: 1 DF, UNK
     Dates: start: 2009

REACTIONS (5)
  - Thrombosis [Not Recovered/Not Resolved]
  - Anxiety [Not Recovered/Not Resolved]
  - Memory impairment [Not Recovered/Not Resolved]
  - Insomnia [Not Recovered/Not Resolved]
  - Drug ineffective [Not Recovered/Not Resolved]
